FAERS Safety Report 9298778 (Version 1)
Quarter: 2013Q2

REPORT INFORMATION
  Report Type: Spontaneous
  Country: GR (occurrence: GR)
  Receive Date: 20130520
  Receipt Date: 20130520
  Transmission Date: 20140414
  Serious: Yes (Hospitalization, Other)
  Sender: FDA-Public Use
  Company Number: GR-GLAXOSMITHKLINE-B0892724A

PATIENT
  Age: 63 Year
  Sex: Male
  Weight: 65 kg

DRUGS (7)
  1. ARIXTRA [Suspect]
     Indication: PULMONARY EMBOLISM
     Dosage: 5MG PER DAY
     Route: 058
     Dates: start: 20130502
  2. FLIXOTIDE [Concomitant]
     Route: 055
  3. ATROVENT [Concomitant]
  4. THEODUR [Concomitant]
  5. LOSEC [Concomitant]
  6. SOLVETAN [Concomitant]
  7. SOLUMEDROL [Concomitant]
     Dosage: 40MG FOUR TIMES PER DAY
     Route: 042

REACTIONS (6)
  - Hepatic failure [Unknown]
  - Hepatic ischaemia [Unknown]
  - Injection site induration [Unknown]
  - Blood pressure decreased [Unknown]
  - Haematocrit decreased [Unknown]
  - Haematoma [Unknown]
